FAERS Safety Report 5440490-9 (Version None)
Quarter: 2007Q3

REPORT INFORMATION
  Report Type: 
  Country: None (occurrence: None)
  Receive Date: 20070831
  Receipt Date: 20070820
  Transmission Date: 20080115
  Serious: Yes (Hospitalization)
  Sender: FDA-Public Use
  Company Number: GB-ROCHE-512529

PATIENT
  Age: 76 Year
  Sex: Female
  Weight: 108 kg

DRUGS (17)
  1. ORLISTAT [Suspect]
     Indication: OBESITY
     Route: 048
     Dates: start: 20070312
  2. CITALOPRAM [Concomitant]
     Indication: DEPRESSION
     Route: 048
  3. PARACETAMOL [Concomitant]
     Indication: PAIN
     Route: 048
     Dates: start: 20070718
  4. VIOXX [Concomitant]
     Indication: PAIN
     Route: 048
  5. LANSOPRAZOLE [Concomitant]
     Indication: ANTACID THERAPY
     Route: 048
  6. AMLODIPINE [Concomitant]
     Indication: HYPERTENSION
     Route: 048
  7. RAMIPRIL [Concomitant]
     Indication: HYPERTENSION
     Route: 048
  8. METFORMIN HCL [Concomitant]
     Route: 048
  9. QUININE [Concomitant]
     Route: 048
  10. SIMVASTATIN [Concomitant]
     Route: 048
  11. LEVOTHYROXINE SODIUM [Concomitant]
     Indication: HYPOTHYROIDISM
     Route: 048
  12. NICORANDIL [Concomitant]
     Indication: ANGINA PECTORIS
     Route: 048
  13. PRAZOSIN HCL [Concomitant]
     Indication: HYPERTENSION
     Dosage: DRUG REPORTED AS PRAZOCIN.
     Route: 048
  14. ALENDRONATE SODIUM [Concomitant]
     Indication: OSTEOPOROSIS
     Dosage: DRUG REPORTED AS ALENDRONATE.
     Route: 048
  15. GTN-S [Concomitant]
     Indication: ANGINA PECTORIS
     Dosage: REPORTED FORMULATION: PUFF.
     Route: 060
  16. ALLOPURINOL [Concomitant]
     Indication: GOUT
     Route: 048
  17. FRUSEMIDE [Concomitant]
     Indication: FLUID RETENTION
     Route: 048

REACTIONS (4)
  - CONCUSSION [None]
  - FALL [None]
  - RESPIRATORY DISORDER [None]
  - RIB FRACTURE [None]
